FAERS Safety Report 15348616 (Version 2)
Quarter: 2018Q4

REPORT INFORMATION
  Report Type: Spontaneous
  Country: US (occurrence: US)
  Receive Date: 20180904
  Receipt Date: 20180919
  Transmission Date: 20190204
  Serious: Yes (Other)
  Sender: FDA-Public Use
  Company Number: US-NEPHRON STERILE COMPOUNDING CENTER-2054591

PATIENT

DRUGS (1)
  1. NEOSTIGMINE METHYLSULFATE INJECTION, USP 5 MG/5 ML (1 MG/ML) [Suspect]
     Active Substance: NEOSTIGMINE METHYLSULFATE

REACTIONS (1)
  - Drug ineffective [Unknown]
